FAERS Safety Report 11060340 (Version 1)
Quarter: 2015Q2

REPORT INFORMATION
  Report Type: Report from Study
  Country: US (occurrence: US)
  Receive Date: 20150423
  Receipt Date: 20150423
  Transmission Date: 20150821
  Serious: Yes (Other)
  Sender: FDA-Public Use
  Company Number: PHEH2013US014448

PATIENT
  Sex: Female

DRUGS (1)
  1. GILENYA [Suspect]
     Active Substance: FINGOLIMOD HYDROCHLORIDE
     Indication: MULTIPLE SCLEROSIS
     Dosage: 0.5 MG, QD
     Route: 048
     Dates: start: 20130528, end: 20130628

REACTIONS (7)
  - Hallucination, auditory [Unknown]
  - Inappropriate affect [Not Recovered/Not Resolved]
  - Mood altered [Not Recovered/Not Resolved]
  - Back pain [Not Recovered/Not Resolved]
  - Bipolar disorder [Unknown]
  - Tremor [Not Recovered/Not Resolved]
  - Mental disorder [Unknown]
